FAERS Safety Report 5754908-5 (Version None)
Quarter: 2008Q2

REPORT INFORMATION
  Report Type: 
  Country: None (occurrence: None)
  Receive Date: 20080527
  Receipt Date: 20080506
  Transmission Date: 20081010
  Serious: Yes (Hospitalization)
  Sender: FDA-Public Use
  Company Number: 2008AL003733

PATIENT
  Age: 60 Year
  Sex: Female

DRUGS (2)
  1. DIGOXIN [Suspect]
     Dosage: 0.25MG DAILY PO
     Route: 048
  2. LISINOPRIL [Concomitant]

REACTIONS (4)
  - DIZZINESS [None]
  - HYPOTENSION [None]
  - PULSE ABSENT [None]
  - SUPRAVENTRICULAR TACHYCARDIA [None]
